FAERS Safety Report 8482366-9 (Version None)
Quarter: 2012Q3

REPORT INFORMATION
  Report Type: 
  Country: None (occurrence: None)
  Receive Date: 20120702
  Receipt Date: 20120621
  Transmission Date: 20120928
  Serious: Yes (Hospitalization)
  Sender: FDA-Public Use
  Company Number: US-JNJFOC-20120517781

PATIENT
  Sex: Female
  Weight: 95.26 kg

DRUGS (20)
  1. XARELTO [Suspect]
     Indication: KNEE ARTHROPLASTY
     Route: 048
     Dates: start: 20120508
  2. PERCOCET [Concomitant]
  3. ZANTAC [Concomitant]
  4. CLARITIN [Concomitant]
  5. MORPHINE [Concomitant]
  6. ADVAIR DISKUS 100/50 [Concomitant]
     Route: 055
  7. ASTELIN [Concomitant]
  8. MULTIVITAMIN [Concomitant]
  9. GUAIFENESIN [Concomitant]
  10. LANTUS [Concomitant]
     Dosage: AT BEDTIME
  11. LEVOTHYROXINE SODIUM [Concomitant]
  12. LYRICA [Concomitant]
  13. MILK OF MAGNESIA TAB [Concomitant]
  14. CLONIDINE [Concomitant]
  15. SINGULAIR [Concomitant]
  16. VALIUM [Concomitant]
  17. HYDROCORTISONE [Concomitant]
  18. FLEXERIL [Concomitant]
  19. COLACE [Concomitant]
  20. XARELTO [Suspect]
     Indication: THROMBOSIS PROPHYLAXIS
     Route: 048
     Dates: start: 20120508

REACTIONS (7)
  - DEEP VEIN THROMBOSIS [None]
  - ATRIAL FIBRILLATION [None]
  - THROMBOCYTOPENIA [None]
  - PYREXIA [None]
  - PNEUMONIA [None]
  - DEPRESSED LEVEL OF CONSCIOUSNESS [None]
  - ADRENAL DISORDER [None]
